FAERS Safety Report 10357735 (Version 1)
Quarter: 2014Q3

REPORT INFORMATION
  Report Type: Report from Study
  Country: JP (occurrence: JP)
  Receive Date: 20140801
  Receipt Date: 20140801
  Transmission Date: 20150326
  Serious: No
  Sender: FDA-Public Use
  Company Number: PHHY2013JP159212

PATIENT
  Age: 67 Year
  Sex: Male

DRUGS (6)
  1. THYRADIN-S [Concomitant]
     Active Substance: LEVOTHYROXINE
     Dosage: UNK UKN, UNK
  2. MAINTATE [Concomitant]
     Active Substance: BISOPROLOL FUMARATE
     Dosage: UNK UKN, UNK
  3. TASIGNA [Suspect]
     Active Substance: NILOTINIB
     Dosage: 400 MG, PER DAY
     Dates: start: 200904
  4. LAXOBERON [Concomitant]
     Active Substance: SODIUM PICOSULFATE
     Dosage: UNK UKN, UNK
  5. ISODINE [Concomitant]
     Active Substance: POVIDONE-IODINE
     Dosage: UNK UKN, UNK
  6. MAGLAX [Concomitant]
     Active Substance: MAGNESIUM OXIDE
     Dosage: UNK UKN, UNK

REACTIONS (2)
  - Depression [Unknown]
  - Anaemia [Unknown]
